FAERS Safety Report 8750293 (Version 2)
Quarter: 2012Q4

REPORT INFORMATION
  Report Type: Spontaneous
  Country: US (occurrence: None)
  Receive Date: 20120810
  Receipt Date: 20120821
  Transmission Date: 20130627
  Serious: Yes (Other)
  Sender: FDA-Public Use
  Company Number: USA/USA/12/0025368

PATIENT
  Age: 50 Year
  Sex: Female
  Weight: 49.9 kg

DRUGS (3)
  1. LEVOFLOXACIN [Suspect]
     Indication: BLADDER INFECTION
     Dosage: 500 MG, 1 IN 1 D, ORAL
     Route: 048
     Dates: start: 20120801
  2. MOTRIN [Concomitant]
  3. SYNTHROID [Concomitant]

REACTIONS (12)
  - Myalgia [None]
  - Headache [None]
  - Diarrhoea [None]
  - Rash erythematous [None]
  - Tremor [None]
  - Oral candidiasis [None]
  - Vulvovaginal mycotic infection [None]
  - Pain [None]
  - Arthralgia [None]
  - Hypoaesthesia [None]
  - Bursitis [None]
  - Fall [None]
